FAERS Safety Report 9943970 (Version 2)
Quarter: 2015Q3

REPORT INFORMATION
  Report Type: Spontaneous
  Country: US (occurrence: US)
  Receive Date: 20140303
  Receipt Date: 20150730
  Transmission Date: 20151125
  Serious: Yes (Other)
  Sender: FDA-Public Use
  Company Number: US-GILEAD-2013-0068526

PATIENT
  Sex: Male

DRUGS (2)
  1. RANEXA [Suspect]
     Active Substance: RANOLAZINE
     Indication: MYOCARDIAL ISCHAEMIA
     Dosage: 500 MG, BID
     Route: 048
  2. RANEXA [Suspect]
     Active Substance: RANOLAZINE
     Indication: ANGINA PECTORIS
     Dosage: 1000 MG, BID
     Route: 048

REACTIONS (5)
  - Chills [Unknown]
  - Feeling abnormal [Unknown]
  - Oedema peripheral [Unknown]
  - Hallucination [Unknown]
  - Confusional state [Unknown]
